FAERS Safety Report 7023608-6 (Version None)
Quarter: 2010Q3

REPORT INFORMATION
  Report Type: 
  Country: None (occurrence: None)
  Receive Date: 20100930
  Receipt Date: 20100922
  Transmission Date: 20110219
  Serious: Yes (Disabling, Other)
  Sender: FDA-Public Use
  Company Number: US-PFIZER INC-2010120663

PATIENT
  Sex: Male
  Weight: 117.91 kg

DRUGS (3)
  1. CHANTIX [Suspect]
     Indication: SMOKING CESSATION THERAPY
     Dosage: 0.5 MG, 1X/DAY
     Route: 048
     Dates: start: 20100401, end: 20100101
  2. CHANTIX [Suspect]
     Dosage: UNK
     Route: 048
     Dates: start: 20100101, end: 20100625
  3. ALEVE (CAPLET) [Concomitant]
     Indication: HEADACHE
     Dosage: 220 MG, AS NEEDED
     Route: 048

REACTIONS (2)
  - MYOSITIS [None]
  - TENDONITIS [None]
